FAERS Safety Report 10876511 (Version 2)
Quarter: 2015Q1

REPORT INFORMATION
  Report Type: Report from Study
  Country: US (occurrence: US)
  Receive Date: 20150301
  Receipt Date: 20150312
  Transmission Date: 20150721
  Serious: Yes (Other)
  Sender: FDA-Public Use
  Company Number: US-BIOGENIDEC-2015BI025309

PATIENT
  Age: 69 Year
  Sex: Female

DRUGS (2)
  1. AVONEX [Suspect]
     Active Substance: INTERFERON BETA-1A
     Indication: MULTIPLE SCLEROSIS
     Route: 030
     Dates: start: 19990201, end: 20140801
  2. BACLOFEN. [Concomitant]
     Active Substance: BACLOFEN
     Dates: start: 2014

REACTIONS (8)
  - Hypersomnia [Not Recovered/Not Resolved]
  - Abdominal discomfort [Not Recovered/Not Resolved]
  - Device infusion issue [Unknown]
  - Device malfunction [Unknown]
  - Accidental overdose [Unknown]
  - Mobility decreased [Not Recovered/Not Resolved]
  - Drug delivery device implantation [Unknown]
  - Limb discomfort [Not Recovered/Not Resolved]

NARRATIVE: CASE EVENT DATE: 2014
